FAERS Safety Report 7020744-5 (Version None)
Quarter: 2010Q3

REPORT INFORMATION
  Report Type: 
  Country: None (occurrence: None)
  Receive Date: 20100927
  Receipt Date: 20100920
  Transmission Date: 20110219
  Serious: Yes (Other)
  Sender: FDA-Public Use
  Company Number: CL-223-2010

PATIENT
  Age: 55 Year
  Sex: Female
  Weight: 65 kg

DRUGS (3)
  1. METRONIDAZOLE [Suspect]
     Indication: HELICOBACTER INFECTION
     Dosage: 400 MG ORAL
     Route: 048
     Dates: start: 20100902, end: 20100905
  2. CLARITHROMYCIN [Suspect]
     Indication: HELICOBACTER INFECTION
     Dosage: 20 MG ORAL
     Route: 048
     Dates: start: 20100902, end: 20100905
  3. ESOMEPRAZOLE [Suspect]
     Indication: HELICOBACTER INFECTION
     Dosage: 500MG ORAL
     Route: 048
     Dates: start: 20100902, end: 20100905

REACTIONS (6)
  - GINGIVAL SWELLING [None]
  - OEDEMA MOUTH [None]
  - ORAL HERPES [None]
  - PHARYNGEAL OEDEMA [None]
  - PRURITUS [None]
  - SWOLLEN TONGUE [None]
